FAERS Safety Report 14371681 (Version 1)
Quarter: 2018Q1

REPORT INFORMATION
  Report Type: Spontaneous
  Country: US (occurrence: US)
  Receive Date: 20180110
  Receipt Date: 20180110
  Transmission Date: 20180509
  Serious: No
  Sender: FDA-Public Use
  Company Number: US-CHIESI USA INC-US-CHSI-17-00061

PATIENT

DRUGS (1)
  1. KENGREAL [Suspect]
     Active Substance: CANGRELOR
     Indication: PLATELET AGGREGATION INHIBITION
     Dosage: 2 MCG/KG/MIN
     Route: 041

REACTIONS (2)
  - Off label use [Unknown]
  - Hyperthermia [Unknown]
